FAERS Safety Report 8927536 (Version 2)
Quarter: 2012Q4

REPORT INFORMATION
  Report Type: 
  Country: FR (occurrence: FR)
  Receive Date: 20121127
  Receipt Date: 20121207
  Transmission Date: 20130627
  Serious: Yes (Hospitalization)
  Sender: FDA-Public Use
  Company Number: FR-B.I. PHARMACEUTICALS,INC./RIDGEFIELD-2012-FF-01671FF

PATIENT
  Sex: Female

DRUGS (5)
  1. PRADAXA [Suspect]
     Indication: ATRIAL FIBRILLATION
     Dosage: 220 mg
     Route: 048
     Dates: start: 201111, end: 20121109
  2. TEMERIT [Concomitant]
  3. INEXIUM [Concomitant]
     Dosage: 20 mg
     Route: 048
  4. SEROPRAM [Concomitant]
     Dosage: 20 mg
     Route: 048
  5. FORLAX [Concomitant]
     Route: 048

REACTIONS (5)
  - Cerebral haemorrhage [Unknown]
  - Fall [Unknown]
  - Rhabdomyolysis [Unknown]
  - Urinary tract infection [Unknown]
  - Hypotension [Unknown]
